FAERS Safety Report 11675857 (Version 1)
Quarter: 2015Q4

REPORT INFORMATION
  Report Type: Spontaneous
  Country: US (occurrence: US)
  Receive Date: 20151028
  Receipt Date: 20151028
  Transmission Date: 20160304
  Serious: Yes (Hospitalization)
  Sender: FDA-Public Use
  Company Number: US-ASTRAZENECA-2015SF02307

PATIENT
  Age: 19 Year
  Sex: Male

DRUGS (3)
  1. QUETIAPINE [Suspect]
     Active Substance: QUETIAPINE
     Indication: SUBSTANCE USE
     Dosage: SNORTING 10 TABLETS
     Route: 045
  2. CLONAZEPAM. [Suspect]
     Active Substance: CLONAZEPAM
     Indication: SUBSTANCE USE
     Dosage: SNORTING 2 TABLETS
     Route: 045
  3. QUETIAPINE [Suspect]
     Active Substance: QUETIAPINE
     Indication: SUBSTANCE USE
     Dosage: SNORTING 8 TABLETS
     Route: 045

REACTIONS (5)
  - Loss of consciousness [Unknown]
  - Mental status changes [Unknown]
  - Intentional overdose [Unknown]
  - Incorrect route of drug administration [Unknown]
  - Drug abuse [Unknown]
